FAERS Safety Report 11913403 (Version 1)
Quarter: 2016Q1

REPORT INFORMATION
  Report Type: Spontaneous
  Country: US (occurrence: US)
  Receive Date: 20160113
  Receipt Date: 20160113
  Transmission Date: 20160526
  Serious: No
  Sender: FDA-Public Use
  Company Number: US-NAVIDEA BIOPHARMACEUTICALS-NVUS1600-14-00033

PATIENT

DRUGS (2)
  1. BENADRYL [Concomitant]
     Active Substance: DIPHENHYDRAMINE HYDROCHLORIDE
  2. LYMPHOSEEK [Suspect]
     Active Substance: TECHNETIUM TC-99M TILMANOCEPT
     Indication: LYMPHATIC MAPPING

REACTIONS (1)
  - Rash [None]

NARRATIVE: CASE EVENT DATE: 20140909
